FAERS Safety Report 4477536-0 (Version None)
Quarter: 2004Q4

REPORT INFORMATION
  Report Type: 
  Country: None (occurrence: None)
  Receive Date: 20041013
  Receipt Date: 20040930
  Transmission Date: 20050328
  Serious: Yes (Hospitalization, Disabling)
  Sender: FDA-Public Use
  Company Number: FR_030502418

PATIENT
  Age: 72 Year
  Sex: Female

DRUGS (8)
  1. PERGOLIDE MESYLATE [Suspect]
     Indication: PARKINSON'S DISEASE
     Dosage: 2.25 MG/DAY
     Dates: start: 20001201, end: 20030610
  2. PROZAC [Concomitant]
  3. MODOPAR [Concomitant]
  4. SELEGILINE HCL [Concomitant]
  5. ZOCOR [Concomitant]
  6. ASPIRIN [Concomitant]
  7. TORENTAL (PENTOXIFYLLINE) [Concomitant]
  8. FOSAMAX [Concomitant]

REACTIONS (7)
  - AORTIC VALVE INCOMPETENCE [None]
  - CARDIAC VALVE DISEASE [None]
  - MITRAL VALVE INCOMPETENCE [None]
  - PULMONARY HYPERTENSION [None]
  - RIGHT VENTRICULAR FAILURE [None]
  - TRICUSPID VALVE INCOMPETENCE [None]
  - WEIGHT INCREASED [None]
